FAERS Safety Report 9157712 (Version 7)
Quarter: 2013Q2

REPORT INFORMATION
  Report Type: Report from Study
  Country: JP (occurrence: JP)
  Receive Date: 20130312
  Receipt Date: 20130526
  Transmission Date: 20140414
  Serious: Yes (Hospitalization)
  Sender: FDA-Public Use
  Company Number: JP-009507513-1303JPN001656

PATIENT
  Age: 76 Year
  Sex: Female
  Weight: 34.1 kg

DRUGS (20)
  1. DEXAMETHASONE [Suspect]
     Indication: PLASMA CELL MYELOMA
     Dosage: 20 MG, UNK
     Route: 048
     Dates: start: 20130212
  2. DEXAMETHASONE [Suspect]
     Dosage: 20 MG, UNK
     Route: 048
     Dates: start: 20130213
  3. DEXAMETHASONE [Suspect]
     Dosage: 20 MG, UNK
     Route: 048
     Dates: start: 20130215
  4. DEXAMETHASONE [Suspect]
     Dosage: 20 MG, UNK
     Route: 048
     Dates: start: 20130216
  5. DEXAMETHASONE [Suspect]
     Dosage: 20 MG, UNK
     Route: 048
     Dates: start: 20130219
  6. DEXAMETHASONE [Suspect]
     Dosage: 20 MG, UNK
     Route: 048
     Dates: start: 20130220
  7. BORTEZOMIB [Suspect]
     Indication: PLASMA CELL MYELOMA
     Dosage: 1.46 MG, DAILY
     Route: 042
     Dates: start: 20130212
  8. BORTEZOMIB [Suspect]
     Dosage: 1.46 MG, DAILY
     Route: 042
     Dates: start: 20130215
  9. BORTEZOMIB [Suspect]
     Dosage: 1.46 MG, DAILY
     Route: 042
     Dates: start: 20130219
  10. STUDY DRUG (UNSPECIFIED) [Suspect]
     Indication: PLASMA CELL MYELOMA
     Dosage: 300 MG, DAILY
     Route: 042
     Dates: start: 20130212
  11. DIFLUCAN [Concomitant]
     Indication: INFECTION PROPHYLAXIS
     Dosage: UNK
     Route: 048
     Dates: start: 20130208
  12. ZOVIRAX [Concomitant]
     Indication: INFECTION PROPHYLAXIS
     Dosage: UNK
     Route: 048
     Dates: start: 20130208
  13. TAKEPRON [Concomitant]
     Indication: PROPHYLAXIS AGAINST GASTROINTESTINAL ULCER
     Dosage: UNK
     Route: 048
     Dates: start: 20130208
  14. PANTOSIN [Concomitant]
     Indication: CONSTIPATION
     Dosage: UNK
     Route: 048
     Dates: start: 20130208
  15. MAGMITT [Concomitant]
     Indication: CONSTIPATION
     Dosage: UNK
     Route: 048
     Dates: start: 20130208
  16. BAKTAR [Concomitant]
     Indication: INFECTION PROPHYLAXIS
     Dosage: UNK
     Route: 048
     Dates: start: 20130208
  17. ONEALFA [Concomitant]
     Indication: OSTEOPOROSIS
     Dosage: UNK
     Route: 048
     Dates: start: 20130208
  18. FENTANYL CITRATE [Concomitant]
     Indication: PAIN
     Dosage: UNK
     Dates: start: 20130201
  19. ZOMETA [Concomitant]
     Indication: PROPHYLAXIS
     Dosage: UNK
     Dates: start: 20130117
  20. OXYNORM [Concomitant]
     Indication: PAIN
     Dosage: UNK

REACTIONS (2)
  - Tumour lysis syndrome [Recovered/Resolved]
  - Febrile neutropenia [Recovered/Resolved]
